FAERS Safety Report 11004663 (Version 3)
Quarter: 2020Q2

REPORT INFORMATION
  Report Type: Report from Study
  Country: US (occurrence: US)
  Receive Date: 20150409
  Receipt Date: 20200622
  Transmission Date: 20200713
  Serious: Yes (Other)
  Sender: FDA-Public Use
  Company Number: US-009507513-1504USA001091

PATIENT
  Age: 67 Year
  Sex: Male

DRUGS (3)
  1. JANUVIA [Suspect]
     Active Substance: SITAGLIPTIN PHOSPHATE
     Dosage: 1 TABLET ONCE DAILY
     Route: 048
  2. VYTORIN [Suspect]
     Active Substance: EZETIMIBE\SIMVASTATIN
     Dosage: TWO 10/40MG TABLETS, DAILY, FOR ABOUT 15 DAYS
     Route: 048
  3. VYTORIN [Suspect]
     Active Substance: EZETIMIBE\SIMVASTATIN
     Dosage: ONE 10/40MG TABLET, ONCE A DAY
     Route: 048

REACTIONS (6)
  - Vision blurred [Unknown]
  - Blood glucose increased [Unknown]
  - Headache [Unknown]
  - Lung neoplasm malignant [Unknown]
  - Overdose [Unknown]
  - Product dose omission [Unknown]

NARRATIVE: CASE EVENT DATE: 2020
